FAERS Safety Report 9803034 (Version 1)
Quarter: 2014Q1

REPORT INFORMATION
  Report Type: Spontaneous
  Country: US (occurrence: None)
  Receive Date: 20140106
  Receipt Date: 20140106
  Transmission Date: 20141002
  Serious: No
  Sender: FDA-Public Use
  Company Number: None

PATIENT
  Age: 58 Year
  Sex: Female
  Weight: 79.38 kg

DRUGS (6)
  1. AMLODIPINE [Suspect]
     Indication: HYPERTENSION
     Route: 048
     Dates: start: 20120317
  2. LISINOPRIL/HCTZ [Suspect]
     Route: 048
     Dates: start: 20120317
  3. CLONIDINE HYDROCHLORIDE [Concomitant]
  4. HYDRALAZINE [Concomitant]
  5. CARVEDILOL [Concomitant]
  6. ONE A DAY WOMENS FORMULA SUPPLEMENTS [Concomitant]

REACTIONS (5)
  - Weight decreased [None]
  - Gingival swelling [None]
  - Swollen tongue [None]
  - Tooth loss [None]
  - Hypophagia [None]
